FAERS Safety Report 6243330-3 (Version None)
Quarter: 2009Q2

REPORT INFORMATION
  Report Type: 
  Country: None (occurrence: None)
  Receive Date: 20090624
  Receipt Date: 20090616
  Transmission Date: 20091009
  Serious: Yes (Hospitalization)
  Sender: FDA-Public Use
  Company Number: JP-MERCK-0906USA02705

PATIENT
  Age: 67 Year
  Sex: Female

DRUGS (7)
  1. ZETIA [Suspect]
     Indication: DYSLIPIDAEMIA
     Route: 048
     Dates: start: 20080911, end: 20081111
  2. ASPIRIN [Concomitant]
     Indication: CARDIAC DISORDER
     Route: 065
     Dates: start: 20071019
  3. ROSUVASTATIN CALCIUM [Concomitant]
     Route: 065
     Dates: start: 20060224
  4. SULPIRIDE [Concomitant]
     Route: 065
     Dates: start: 20071019
  5. ZOLPIDEM TARTRATE [Concomitant]
     Route: 065
     Dates: start: 20071019
  6. FUROSEMIDE [Concomitant]
     Route: 048
     Dates: start: 20071121
  7. CARVEDILOL [Concomitant]
     Route: 065
     Dates: start: 20071214

REACTIONS (2)
  - AUTOIMMUNE HEPATITIS [None]
  - OVERDOSE [None]
